FAERS Safety Report 24922033 (Version 1)
Quarter: 2025Q1

REPORT INFORMATION
  Report Type: Spontaneous
  Country: FR (occurrence: FR)
  Receive Date: 20250204
  Receipt Date: 20250204
  Transmission Date: 20250408
  Serious: Yes (Hospitalization)
  Sender: RANBAXY
  Company Number: FR-SUN PHARMACEUTICAL INDUSTRIES LTD-2025RR-491545

PATIENT
  Age: 57 Year
  Sex: Male
  Weight: 101 kg

DRUGS (5)
  1. PREGABALIN [Suspect]
     Active Substance: PREGABALIN
     Indication: Carpal tunnel syndrome
     Dosage: 50 MILLIGRAM, BID
     Route: 048
     Dates: start: 20240618, end: 20240825
  2. LANSOPRAZOLE [Suspect]
     Active Substance: LANSOPRAZOLE
     Indication: Product used for unknown indication
     Dosage: 15 MILLIGRAM, DAILY
     Route: 048
     Dates: start: 20240819, end: 20240821
  3. CLINDAMYCIN HYDROCHLORIDE [Suspect]
     Active Substance: CLINDAMYCIN HYDROCHLORIDE
     Indication: Dermo-hypodermitis
     Dosage: 600 MILLIGRAM, QID
     Route: 048
     Dates: start: 20240818, end: 20240825
  4. OPDIVO [Concomitant]
     Active Substance: NIVOLUMAB
     Indication: Malignant melanoma
     Route: 040
     Dates: start: 20240820, end: 20240820
  5. YERVOY [Concomitant]
     Active Substance: IPILIMUMAB
     Indication: Malignant melanoma
     Route: 040
     Dates: start: 20240820, end: 20240820

REACTIONS (1)
  - Drug reaction with eosinophilia and systemic symptoms [Recovered/Resolved]

NARRATIVE: CASE EVENT DATE: 20240825
